FAERS Safety Report 12218958 (Version 1)
Quarter: 2016Q1

REPORT INFORMATION
  Report Type: Spontaneous
  Country: US (occurrence: US)
  Receive Date: 20160329
  Receipt Date: 20160329
  Transmission Date: 20160526
  Serious: No
  Sender: FDA-Public Use
  Company Number: GXBR2015US000998

PATIENT
  Sex: Male
  Weight: 70.3 kg

DRUGS (1)
  1. TRIAMCINOLONE ACETONIDE. [Suspect]
     Active Substance: TRIAMCINOLONE ACETONIDE
     Indication: ECZEMA
     Dosage: UNK DF, UNK
     Route: 061

REACTIONS (3)
  - Erythema [Unknown]
  - Rash [Unknown]
  - Urticaria [Unknown]
